FAERS Safety Report 13245780 (Version 1)
Quarter: 2017Q1

REPORT INFORMATION
  Report Type: Spontaneous
  Country: CH (occurrence: CH)
  Receive Date: 20170217
  Receipt Date: 20170217
  Transmission Date: 20170428
  Serious: No
  Sender: FDA-Public Use
  Company Number: CH-PERNIX THERAPEUTICS-2016PT000204

PATIENT

DRUGS (3)
  1. BEN U RON [Concomitant]
     Indication: PYREXIA
     Dosage: UNK
     Dates: end: 20160911
  2. CEDAX [Suspect]
     Active Substance: CEFTIBUTEN DIHYDRATE
     Indication: PRODUCT USED FOR UNKNOWN INDICATION
     Dosage: UNK
     Route: 048
     Dates: start: 20160910, end: 20160914
  3. ALGIFOR [Concomitant]
     Active Substance: IBUPROFEN
     Indication: PYREXIA
     Dosage: UNK
     Dates: end: 20160911

REACTIONS (2)
  - Lacrimation increased [Recovered/Resolved]
  - Aggression [Recovered/Resolved]

NARRATIVE: CASE EVENT DATE: 201609
